FAERS Safety Report 9262518 (Version 7)
Quarter: 2013Q4

REPORT INFORMATION
  Report Type: Spontaneous
  Country: AU (occurrence: AU)
  Receive Date: 20130430
  Receipt Date: 20131101
  Transmission Date: 20140711
  Serious: Yes (Disabling, Other)
  Sender: FDA-Public Use
  Company Number: AU-ROCHE-1218891

PATIENT
  Sex: Female

DRUGS (6)
  1. XOLAIR [Suspect]
     Indication: ASTHMA
     Route: 058
     Dates: start: 20120807, end: 20130122
  2. CLARITHROMYCIN [Concomitant]
     Route: 065
     Dates: start: 2011
  3. SERETIDE [Concomitant]
     Dosage: 250/25 MG.
     Route: 065
     Dates: end: 2010
  4. SALBUTAMOL [Concomitant]
  5. AVAMYS [Concomitant]
     Route: 065
     Dates: start: 2011
  6. PANTOPRAZOLE [Concomitant]
     Route: 065
     Dates: start: 2010

REACTIONS (5)
  - Multiple sclerosis [Not Recovered/Not Resolved]
  - Lethargy [Unknown]
  - Muscular weakness [Unknown]
  - Headache [Unknown]
  - No therapeutic response [Unknown]
